FAERS Safety Report 9493027 (Version 5)
Quarter: 2013Q4

REPORT INFORMATION
  Report Type: Report from Study
  Country: CO (occurrence: CO)
  Receive Date: 20130902
  Receipt Date: 20131221
  Transmission Date: 20140711
  Serious: Yes (Disabling, Other)
  Sender: FDA-Public Use
  Company Number: CO-ROCHE-1217361

PATIENT
  Age: 59 Year
  Sex: Female
  Weight: 63.06 kg

DRUGS (5)
  1. LUCENTIS [Suspect]
     Indication: RETINAL VASCULAR THROMBOSIS
     Route: 050
     Dates: start: 201202
  2. LUCENTIS [Suspect]
     Dosage: RECEIVED THREE DOSES OF RANIBIZUMAB.
     Route: 050
     Dates: start: 201301, end: 201303
  3. LUCENTIS [Suspect]
     Route: 050
     Dates: start: 20121111
  4. AMLODIPINE [Concomitant]
     Indication: HYPERTENSION
  5. ATORVASTATIN [Concomitant]
     Indication: BLOOD CHOLESTEROL

REACTIONS (1)
  - Eye haemorrhage [Recovering/Resolving]
